FAERS Safety Report 16349549 (Version 7)
Quarter: 2020Q3

REPORT INFORMATION
  Report Type: Spontaneous
  Country: US (occurrence: US)
  Receive Date: 20190523
  Receipt Date: 20200817
  Transmission Date: 20201102
  Serious: Yes (Hospitalization, Other)
  Sender: FDA-Public Use
  Company Number: US-ACTELION-A-NJ2019-184414

PATIENT
  Age: 64 Year
  Sex: Female
  Weight: 113.38 kg

DRUGS (4)
  1. OXYGEN. [Concomitant]
     Active Substance: OXYGEN
  2. XARELTO [Concomitant]
     Active Substance: RIVAROXABAN
  3. OPSUMIT [Suspect]
     Active Substance: MACITENTAN
     Indication: PULMONARY ARTERIAL HYPERTENSION
     Dosage: 10 MG, QD
     Route: 048
     Dates: start: 201607
  4. DILTIAZEM. [Concomitant]
     Active Substance: DILTIAZEM

REACTIONS (9)
  - Pneumonia [Unknown]
  - Asthma [Not Recovered/Not Resolved]
  - Immunodeficiency [Unknown]
  - Bronchitis [Unknown]
  - Condition aggravated [Recovered/Resolved]
  - Sepsis [Unknown]
  - Colitis ulcerative [Not Recovered/Not Resolved]
  - Pulmonary arterial hypertension [Recovered/Resolved]
  - Anaemia [Unknown]

NARRATIVE: CASE EVENT DATE: 20181220
